FAERS Safety Report 12912174 (Version 1)
Quarter: 2016Q4

REPORT INFORMATION
  Report Type: Spontaneous
  Country: US (occurrence: US)
  Receive Date: 20161104
  Receipt Date: 20161104
  Transmission Date: 20170207
  Serious: No
  Sender: FDA-Public Use
  Company Number: US-CHARTWELL LIFE SCIENCE LLC-2015CHA00012

PATIENT
  Sex: Female

DRUGS (9)
  1. DOXYCYLINE [Suspect]
     Active Substance: DOXYCYCLINE
     Indication: DRY EYE
     Dosage: 100 MG, 2X/DAY, MUTUAL/URL PHARMACEUTICALS
     Dates: start: 20150227, end: 2015
  2. DOXYCYLINE [Suspect]
     Active Substance: DOXYCYCLINE
     Indication: DRY EYE
     Dosage: 100 MG, 2X/DAY, WEST-WARD PHARMACEUTICALS
     Route: 048
     Dates: start: 20150929, end: 2015
  3. DOXYCYCLINE HYCLATE. [Suspect]
     Active Substance: DOXYCYCLINE HYCLATE
     Indication: DRY EYE
     Dosage: UNK
     Dates: start: 1998
  4. DOXYCYCLINE HYCLATE. [Suspect]
     Active Substance: DOXYCYCLINE HYCLATE
     Dosage: 100 MG, 2X/DAY
     Dates: start: 20150604, end: 2015
  5. DOXYCYLINE [Suspect]
     Active Substance: DOXYCYCLINE
     Indication: SKIN DISORDER
  6. DOXYCYCLINE HYCLATE. [Suspect]
     Active Substance: DOXYCYCLINE HYCLATE
     Indication: EYE IRRITATION
     Dosage: UNK
     Dates: start: 2005
  7. ABILIFY [Concomitant]
     Active Substance: ARIPIPRAZOLE
     Indication: AFFECTIVE DISORDER
  8. DOXYCYLINE [Suspect]
     Active Substance: DOXYCYCLINE
     Indication: EYE IRRITATION
  9. DOXYCYLINE [Suspect]
     Active Substance: DOXYCYCLINE
     Indication: EYE IRRITATION

REACTIONS (5)
  - Tooth disorder [Not Recovered/Not Resolved]
  - Dental caries [Not Recovered/Not Resolved]
  - Tooth discolouration [Not Recovered/Not Resolved]
  - Toothache [Not Recovered/Not Resolved]
  - Enamel anomaly [Not Recovered/Not Resolved]

NARRATIVE: CASE EVENT DATE: 2015
